FAERS Safety Report 7507485-2 (Version None)
Quarter: 2011Q2

REPORT INFORMATION
  Report Type: 
  Country: None (occurrence: None)
  Receive Date: 20110526
  Receipt Date: 20110411
  Transmission Date: 20111010
  Serious: No
  Sender: FDA-Public Use
  Company Number: US-MYLANLABS-2011S1007567

PATIENT
  Age: 61 Year
  Sex: Female

DRUGS (1)
  1. VALACYCLOVIR HYDROCHLORIDE [Suspect]
     Indication: HERPES ZOSTER
     Route: 048
     Dates: start: 20110405, end: 20110408

REACTIONS (2)
  - ABDOMINAL PAIN UPPER [None]
  - HEADACHE [None]
